FAERS Safety Report 18546689 (Version 2)
Quarter: 2020Q4

REPORT INFORMATION
  Report Type: Spontaneous
  Country: MX (occurrence: MX)
  Receive Date: 20201125
  Receipt Date: 20201207
  Transmission Date: 20210114
  Serious: Yes (Hospitalization, Other)
  Sender: FDA-Public Use
  Company Number: MX-PFIZER INC-2020463173

PATIENT
  Age: 63 Year
  Sex: Female

DRUGS (4)
  1. AZULFIDINA [Suspect]
     Active Substance: SULFASALAZINE
     Indication: COLITIS ULCERATIVE
     Dosage: 4 DF, 2X/DAY (2 IN THE MORNING AND 2 IN THE EVENING)
  2. LYRICA [Concomitant]
     Active Substance: PREGABALIN
     Indication: FIBROMYALGIA
     Dosage: UNK
  3. AZULFIDINA [Suspect]
     Active Substance: SULFASALAZINE
     Indication: CROHN^S DISEASE
     Dosage: 3 DF, DAILY (1 IN THE MORNING AND 2 IN THE EVENING)
  4. AZULFIDINA [Suspect]
     Active Substance: SULFASALAZINE
     Indication: ANKYLOSING SPONDYLITIS

REACTIONS (7)
  - Loss of consciousness [Recovered/Resolved]
  - Intentional product misuse [Unknown]
  - Uveitis [Unknown]
  - Pulmonary embolism [Unknown]
  - Pain [Not Recovered/Not Resolved]
  - Cardiac disorder [Unknown]
  - Gait disturbance [Unknown]

NARRATIVE: CASE EVENT DATE: 2010
